FAERS Safety Report 17802077 (Version 1)
Quarter: 2020Q2

REPORT INFORMATION
  Report Type: Spontaneous
  Country: US (occurrence: US)
  Receive Date: 20200519
  Receipt Date: 20200519
  Transmission Date: 20200714
  Serious: No
  Sender: FDA-Public Use
  Company Number: US-GLAXOSMITHKLINE-US2020083031

PATIENT
  Age: 67 Year
  Sex: Male

DRUGS (1)
  1. FLONASE [Suspect]
     Active Substance: FLUTICASONE PROPIONATE
     Indication: HYPERSENSITIVITY
     Dosage: UNK UNK, BID
     Dates: start: 20200514

REACTIONS (4)
  - Ill-defined disorder [Unknown]
  - Tremor [Not Recovered/Not Resolved]
  - Retching [Unknown]
  - Oropharyngeal pain [Unknown]
